FAERS Safety Report 10804050 (Version 1)
Quarter: 2015Q1

REPORT INFORMATION
  Report Type: Report from Study
  Country: US (occurrence: US)
  Receive Date: 20150217
  Receipt Date: 20150217
  Transmission Date: 20150721
  Serious: Yes (Other)
  Sender: FDA-Public Use
  Company Number: US-SA-2015SA017534

PATIENT

DRUGS (3)
  1. ENOXAPARIN SODIUM. [Suspect]
     Active Substance: ENOXAPARIN SODIUM
     Indication: THROMBOSIS PROPHYLAXIS
     Dosage: PREOPERATIVE
     Route: 058
  2. ENOXAPARIN SODIUM. [Suspect]
     Active Substance: ENOXAPARIN SODIUM
     Indication: THROMBOSIS PROPHYLAXIS
     Dosage: POST-OPERATIVE
     Route: 058
  3. SALINE [Suspect]
     Active Substance: SODIUM CHLORIDE
     Indication: THROMBOSIS PROPHYLAXIS
     Dosage: SIX HOURS AFTER SURGERY
     Route: 065

REACTIONS (1)
  - Atrial fibrillation [Recovered/Resolved]
